FAERS Safety Report 7713249-7 (Version None)
Quarter: 2011Q3

REPORT INFORMATION
  Report Type: 
  Country: None (occurrence: None)
  Receive Date: 20110826
  Receipt Date: 20110813
  Transmission Date: 20111222
  Serious: Yes (Other)
  Sender: FDA-Public Use
  Company Number: US-BAYER-2011-076947

PATIENT
  Sex: Female

DRUGS (1)
  1. ALKA-SELTZER (UNKNOWN FORMULATION) [Suspect]
     Dosage: 1 DF, UNK
     Route: 048

REACTIONS (1)
  - ADVERSE EVENT [None]
